FAERS Safety Report 10058267 (Version 2)
Quarter: 2014Q2

REPORT INFORMATION
  Report Type: Spontaneous
  Country: IT (occurrence: IT)
  Receive Date: 20140404
  Receipt Date: 20140415
  Transmission Date: 20141212
  Serious: Yes (Hospitalization)
  Sender: FDA-Public Use
  Company Number: IT-JNJFOC-20140316248

PATIENT
  Age: 42 Year
  Sex: Female

DRUGS (6)
  1. INVEGA [Suspect]
     Indication: DEPRESSION
     Route: 048
  2. INVEGA [Suspect]
     Indication: DEPRESSION
     Route: 048
     Dates: start: 20140204, end: 20140204
  3. FELISON [Suspect]
     Indication: DEPRESSION
     Route: 048
     Dates: start: 20140204, end: 20140204
  4. FELISON [Suspect]
     Indication: DEPRESSION
     Route: 048
  5. AKINETON [Suspect]
     Indication: DEPRESSION
     Route: 048
     Dates: start: 20140204, end: 20140204
  6. AKINETON [Suspect]
     Indication: DEPRESSION
     Route: 048

REACTIONS (4)
  - Sopor [Recovered/Resolved]
  - Intentional overdose [Recovered/Resolved]
  - Off label use [Unknown]
  - Drug abuse [Recovered/Resolved]
